FAERS Safety Report 8911190 (Version 1)
Quarter: 2012Q4

REPORT INFORMATION
  Report Type: 
  Country: US (occurrence: US)
  Receive Date: 20121116
  Receipt Date: 20121116
  Transmission Date: 20130627
  Serious: No
  Sender: FDA-Public Use
  Company Number: US-GLAXOSMITHKLINE-A0989885A

PATIENT

DRUGS (1)
  1. VOTRIENT [Suspect]
     Indication: SARCOMA
     Route: 065

REACTIONS (1)
  - Ejection fraction decreased [Recovering/Resolving]
